FAERS Safety Report 6083291-3 (Version None)
Quarter: 2009Q1

REPORT INFORMATION
  Report Type: 
  Country: None (occurrence: None)
  Receive Date: 20090213
  Receipt Date: 20090213
  Transmission Date: 20090719
  Serious: Yes (Life-Threatening, Other)
  Sender: FDA-Public Use
  Company Number: None

PATIENT
  Age: 59 Year
  Sex: Female
  Weight: 74.8435 kg

DRUGS (1)
  1. ACTIVELLA [Suspect]
     Indication: VULVOVAGINAL DRYNESS

REACTIONS (3)
  - DYSPNOEA [None]
  - FEELING ABNORMAL [None]
  - SUICIDAL IDEATION [None]
